FAERS Safety Report 10101626 (Version 2)
Quarter: 2014Q2

REPORT INFORMATION
  Report Type: Spontaneous
  Country: AR (occurrence: AR)
  Receive Date: 20140424
  Receipt Date: 20140430
  Transmission Date: 20141212
  Serious: Yes (Death, Hospitalization, Disabling)
  Sender: FDA-Public Use
  Company Number: AR-SA-2014SA051618

PATIENT
  Age: 55 Year
  Sex: Male

DRUGS (9)
  1. FABRAZYME [Suspect]
     Indication: FABRY^S DISEASE
     Route: 042
     Dates: start: 20140327, end: 20140327
  2. FOLIC ACID [Concomitant]
  3. VITAMIN B [Concomitant]
  4. VITAMIN C [Concomitant]
  5. IRON [Concomitant]
  6. ERYTHROPOIETIN [Concomitant]
  7. TRAMADOL [Concomitant]
     Indication: PAIN
     Route: 048
  8. PARACETAMOL [Concomitant]
     Indication: PAIN
     Route: 048
  9. CLONAZEPAM [Concomitant]
     Indication: SLEEP DISORDER

REACTIONS (5)
  - Ischaemic stroke [Fatal]
  - Basilar artery occlusion [Unknown]
  - Coma [Unknown]
  - Depressed level of consciousness [Unknown]
  - Hypoglycaemia [Unknown]
